FAERS Safety Report 23102565 (Version 2)
Quarter: 2023Q4

REPORT INFORMATION
  Report Type: Report from Study
  Country: CA (occurrence: CA)
  Receive Date: 20231025
  Receipt Date: 20231203
  Transmission Date: 20240110
  Serious: Yes (Other)
  Sender: FDA-Public Use
  Company Number: CA-JNJFOC-20231058266

PATIENT
  Age: 35 Year
  Sex: Male

DRUGS (1)
  1. SIMPONI [Suspect]
     Active Substance: GOLIMUMAB
     Indication: Colitis ulcerative
     Route: 058

REACTIONS (2)
  - Colitis ulcerative [Not Recovered/Not Resolved]
  - Bacterial infection [Recovered/Resolved]
